FAERS Safety Report 5900060-2 (Version None)
Quarter: 2008Q3

REPORT INFORMATION
  Report Type: 
  Country: None (occurrence: None)
  Receive Date: 20080926
  Receipt Date: 20080916
  Transmission Date: 20090109
  Serious: Yes (Other)
  Sender: FDA-Public Use
  Company Number: US-JNJFOC-20080500941

PATIENT
  Sex: Male

DRUGS (4)
  1. REMICADE [Suspect]
     Route: 042
  2. REMICADE [Suspect]
     Indication: RHEUMATOID ARTHRITIS
     Route: 042
  3. ARAVA [Concomitant]
     Indication: RHEUMATOID ARTHRITIS
  4. TYLENOL (CAPLET) [Concomitant]
     Indication: PAIN

REACTIONS (4)
  - ABDOMINAL DISCOMFORT [None]
  - BLADDER TRANSITIONAL CELL CARCINOMA [None]
  - OSTEOARTHRITIS [None]
  - PROSTATE CANCER [None]
